FAERS Safety Report 25822032 (Version 1)
Quarter: 2025Q3

REPORT INFORMATION
  Report Type: Spontaneous
  Country: US (occurrence: US)
  Receive Date: 20250919
  Receipt Date: 20250919
  Transmission Date: 20251020
  Serious: Yes (Hospitalization)
  Sender: CATALYST PHARMA
  Company Number: US-CATALYSTPHARMACEUTICALPARTNERS-US-CATA-25-01357

PATIENT

DRUGS (5)
  1. FYCOMPA [Suspect]
     Active Substance: PERAMPANEL
     Indication: Catamenial epilepsy
     Route: 065
  2. FYCOMPA [Suspect]
     Active Substance: PERAMPANEL
     Route: 065
  3. FYCOMPA [Suspect]
     Active Substance: PERAMPANEL
     Route: 065
  4. TOPIRAMATE [Concomitant]
     Active Substance: TOPIRAMATE
     Indication: Catamenial epilepsy
     Route: 065
  5. LAMOTRIGINE [Concomitant]
     Active Substance: LAMOTRIGINE
     Indication: Catamenial epilepsy
     Route: 065

REACTIONS (5)
  - Hospitalisation [Unknown]
  - Vision blurred [Unknown]
  - Gait disturbance [Unknown]
  - Fall [Unknown]
  - Euphoric mood [Not Recovered/Not Resolved]
